FAERS Safety Report 6390890-8 (Version None)
Quarter: 2009Q4

REPORT INFORMATION
  Report Type: 
  Country: None (occurrence: None)
  Receive Date: 20091003
  Receipt Date: 20090922
  Transmission Date: 20100525
  Serious: Yes (Other)
  Sender: FDA-Public Use
  Company Number: B0595529B

PATIENT

DRUGS (1)
  1. SALBUTAMOL SULPHATE (FORMULATION UNKNOWN) (ALBUTEROL SULFATE) (GENERIC [Suspect]
     Indication: ASTHMA
     Dosage: TRANSPLACENTARY
     Route: 064

REACTIONS (3)
  - CAESAREAN SECTION [None]
  - FOETAL DISTRESS SYNDROME [None]
  - MATERNAL DRUGS AFFECTING FOETUS [None]
